APPROVED DRUG PRODUCT: DAPSONE
Active Ingredient: DAPSONE
Strength: 7.5%
Dosage Form/Route: GEL;TOPICAL
Application: A215718 | Product #001 | TE Code: AB
Applicant: ALEMBIC PHARMACEUTICALS LTD
Approved: Oct 27, 2023 | RLD: No | RS: No | Type: RX